FAERS Safety Report 22311241 (Version 1)
Quarter: 2023Q2

REPORT INFORMATION
  Report Type: Spontaneous
  Country: US (occurrence: None)
  Receive Date: 20230509
  Receipt Date: 20230509
  Transmission Date: 20230721
  Serious: Yes (Other)
  Sender: FDA-Public Use
  Company Number: None

PATIENT
  Age: 69 Year
  Sex: Female
  Weight: 82.1 kg

DRUGS (1)
  1. PAXLOVID [Suspect]
     Active Substance: NIRMATRELVIR\RITONAVIR
     Indication: COVID-19
     Dates: start: 20230124, end: 20230125

REACTIONS (12)
  - Diarrhoea [None]
  - Nausea [None]
  - Dizziness [None]
  - Tremor [None]
  - Heart rate increased [None]
  - Vertigo [None]
  - Fall [None]
  - Therapy interrupted [None]
  - Foot fracture [None]
  - Dysgeusia [None]
  - Dysgeusia [None]
  - Brief resolved unexplained event [None]

NARRATIVE: CASE EVENT DATE: 20230125
